FAERS Safety Report 8583282-4 (Version None)
Quarter: 2012Q3

REPORT INFORMATION
  Report Type: 
  Country: None (occurrence: None)
  Receive Date: 20120809
  Receipt Date: 20120802
  Transmission Date: 20120928
  Serious: Yes (Other)
  Sender: FDA-Public Use
  Company Number: DE-B.I. PHARMACEUTICALS,INC./RIDGEFIELD-2012-DE-01806DE

PATIENT
  Age: 64 Year
  Sex: Male
  Weight: 99 kg

DRUGS (3)
  1. MOBIC [Suspect]
  2. MICARDIS [Suspect]
     Dosage: 1 ANZ
     Dates: start: 20040101
  3. AMLODIPINE [Suspect]

REACTIONS (2)
  - OEDEMA [None]
  - HYPERTENSIVE CRISIS [None]
